FAERS Safety Report 20017021 (Version 1)
Quarter: 2021Q4

REPORT INFORMATION
  Report Type: Spontaneous
  Country: US (occurrence: US)
  Receive Date: 20211030
  Receipt Date: 20211030
  Transmission Date: 20220303
  Serious: No
  Sender: FDA-Public Use
  Company Number: US-AUROBINDO-AUR-APL-2020-051949

PATIENT

DRUGS (1)
  1. ESCITALOPRAM OXALATE [Suspect]
     Active Substance: ESCITALOPRAM OXALATE
     Indication: Anxiety disorder
     Dosage: UNK
     Route: 065

REACTIONS (4)
  - Influenza like illness [Unknown]
  - Feeling abnormal [Unknown]
  - Drug ineffective [Unknown]
  - Product substitution issue [Unknown]
